FAERS Safety Report 18459925 (Version 2)
Quarter: 2021Q1

REPORT INFORMATION
  Report Type: Report from Study
  Country: CA (occurrence: CA)
  Receive Date: 20201104
  Receipt Date: 20210315
  Transmission Date: 20210419
  Serious: Yes (Other)
  Sender: FDA-Public Use
  Company Number: CA-SAMSUNG BIOEPIS-SB-2020-27872

PATIENT
  Age: 62 Year
  Sex: Female
  Weight: 79 kg

DRUGS (2)
  1. RENFLEXIS [Suspect]
     Active Substance: INFLIXIMAB-ABDA
     Indication: CROHN^S DISEASE
     Route: 042
     Dates: start: 20200317
  2. CHOLESTYRAMINE. [Concomitant]
     Active Substance: CHOLESTYRAMINE
     Indication: PRODUCT USED FOR UNKNOWN INDICATION
     Dosage: ONE PACKAGE PER DAY PRIOR TO BED
     Route: 065

REACTIONS (9)
  - Crohn^s disease [Recovered/Resolved]
  - Immunodeficiency [Unknown]
  - Skin cancer [Unknown]
  - Blood pressure abnormal [Unknown]
  - Product substitution issue [Unknown]
  - Loss of personal independence in daily activities [Unknown]
  - Drug ineffective [Unknown]
  - Stress [Unknown]
  - Vomiting [Recovered/Resolved]

NARRATIVE: CASE EVENT DATE: 20201027
